FAERS Safety Report 5801761-7 (Version None)
Quarter: 2008Q3

REPORT INFORMATION
  Report Type: 
  Country: None (occurrence: None)
  Receive Date: 20080707
  Receipt Date: 20080625
  Transmission Date: 20090109
  Serious: Yes (Hospitalization)
  Sender: FDA-Public Use
  Company Number: JP-AVENTIS-200810592JP

PATIENT
  Age: 64 Year
  Sex: Female
  Weight: 46.1 kg

DRUGS (53)
  1. TAXOTERE [Suspect]
     Indication: BREAST CANCER
     Route: 041
     Dates: start: 20080201, end: 20080201
  2. TAXOTERE [Suspect]
     Route: 041
     Dates: start: 20080111, end: 20080111
  3. TAXOTERE [Suspect]
     Route: 041
     Dates: start: 20071221, end: 20071221
  4. HERCEPTIN [Concomitant]
     Indication: BREAST CANCER
     Route: 041
     Dates: start: 20080201, end: 20080201
  5. HERCEPTIN [Concomitant]
     Route: 041
     Dates: start: 20080111
  6. HERCEPTIN [Concomitant]
     Route: 041
     Dates: start: 20071228
  7. HERCEPTIN [Concomitant]
     Route: 041
     Dates: start: 20071221, end: 20071221
  8. 5 % GLUCOSE [Concomitant]
     Dates: start: 20071221, end: 20080201
  9. DEXART [Concomitant]
     Indication: PREMEDICATION
     Dates: start: 20071221, end: 20080201
  10. ZANTAC [Concomitant]
     Indication: GASTRIC DISORDER
     Dates: start: 20071221, end: 20080208
  11. ZANTAC [Concomitant]
     Indication: PROPHYLAXIS
     Dates: start: 20071221, end: 20080208
  12. KYTRIL                             /01178101/ [Concomitant]
     Indication: PROPHYLAXIS OF NAUSEA AND VOMITING
     Dates: start: 20071221, end: 20080201
  13. LORCAM [Concomitant]
     Indication: NEURALGIA
     Route: 048
     Dates: start: 20071119, end: 20080214
  14. SOLANAX [Concomitant]
     Indication: ANXIETY DISORDER
     Route: 048
     Dates: start: 20071119, end: 20080214
  15. ROHYPNOL [Concomitant]
     Indication: INSOMNIA
     Route: 048
     Dates: start: 20071119, end: 20080117
  16. TRYPTANOL                          /00002202/ [Concomitant]
     Indication: ANXIETY DISORDER
     Route: 048
     Dates: start: 20071228, end: 20080214
  17. MILTAX [Concomitant]
     Indication: NEURALGIA
     Dosage: DOSE: AS NEEDED
     Route: 003
     Dates: start: 20061012, end: 20080214
  18. SELBEX [Concomitant]
     Indication: GASTRIC DISORDER
     Route: 048
     Dates: start: 20061114, end: 20080214
  19. SELBEX [Concomitant]
     Indication: PROPHYLAXIS
     Route: 048
     Dates: start: 20061114, end: 20080214
  20. RESTAMIN [Concomitant]
     Indication: ALLERGY PROPHYLAXIS
     Route: 048
     Dates: start: 20071221, end: 20071221
  21. VOLTAREN [Concomitant]
     Indication: PROPHYLAXIS
     Route: 054
     Dates: start: 20071221, end: 20071221
  22. VOLTAREN [Concomitant]
     Indication: PYREXIA
     Route: 054
     Dates: start: 20071221, end: 20071221
  23. NOVAMIN                            /00013301/ [Concomitant]
     Indication: PROPHYLAXIS OF NAUSEA AND VOMITING
     Route: 048
     Dates: start: 20071221, end: 20071225
  24. NOVAMIN                            /00013301/ [Concomitant]
     Route: 048
     Dates: start: 20080201, end: 20080205
  25. DOGMATYL [Concomitant]
     Indication: GASTRIC DISORDER
     Route: 048
     Dates: start: 20071221, end: 20071225
  26. DOGMATYL [Concomitant]
     Indication: PROPHYLAXIS
     Route: 048
     Dates: start: 20071221, end: 20071225
  27. DOGMATYL [Concomitant]
     Route: 048
     Dates: start: 20080201, end: 20080205
  28. RINDERON                           /00008501/ [Concomitant]
     Indication: PROPHYLAXIS OF NAUSEA AND VOMITING
     Route: 048
     Dates: start: 20071221, end: 20071225
  29. RINDERON                           /00008501/ [Concomitant]
     Route: 048
     Dates: start: 20080201, end: 20080205
  30. RINDERON                           /00008501/ [Concomitant]
     Indication: OEDEMA
     Route: 048
     Dates: start: 20071221, end: 20071225
  31. RINDERON                           /00008501/ [Concomitant]
     Indication: PROPHYLAXIS
     Route: 048
     Dates: start: 20071221, end: 20071225
  32. RINDERON                           /00008501/ [Concomitant]
     Route: 048
     Dates: start: 20080201, end: 20080205
  33. NASEA [Concomitant]
     Indication: PROPHYLAXIS OF NAUSEA AND VOMITING
     Route: 048
     Dates: start: 20071227, end: 20080207
  34. SOLUTIONS AFFECTING THE ELECTROLYTE BALANCE [Concomitant]
     Indication: PROPHYLAXIS OF NAUSEA AND VOMITING
     Dates: start: 20071227, end: 20071228
  35. SOLUTIONS AFFECTING THE ELECTROLYTE BALANCE [Concomitant]
     Dates: start: 20080208, end: 20080208
  36. PRIMPERAN                          /00041901/ [Concomitant]
     Indication: PROPHYLAXIS OF NAUSEA AND VOMITING
     Dates: start: 20071227, end: 20071228
  37. PRIMPERAN                          /00041901/ [Concomitant]
     Dates: start: 20080208, end: 20080208
  38. KENALOG [Concomitant]
     Indication: STOMATITIS
     Dosage: DOSE: AS NEEDED
     Route: 003
     Dates: start: 20080104, end: 20080201
  39. PURSENNID                          /00571901/ [Concomitant]
     Indication: CONSTIPATION
     Route: 048
     Dates: start: 20080104, end: 20080212
  40. SP TROCHE [Concomitant]
     Indication: STOMATITIS
     Route: 048
     Dates: start: 20080104, end: 20080214
  41. LIDOMEX [Concomitant]
     Indication: DERMATITIS CONTACT
     Dosage: DOSE: AS NEEDED
     Route: 003
     Dates: start: 20080104, end: 20080201
  42. ASTAT [Concomitant]
     Indication: ORAL CANDIDIASIS
     Dosage: DOSE: AS NEEDED
     Route: 003
     Dates: start: 20080104, end: 20080111
  43. WHITE PETROLATUM [Concomitant]
     Indication: DERMATITIS CONTACT
     Dosage: DOSE: AS NEEDED
     Route: 003
     Dates: start: 20080118, end: 20080201
  44. RINDERON-V [Concomitant]
     Indication: DERMATITIS CONTACT
     Dosage: DOSE: AS NEEDED
     Route: 003
     Dates: start: 20080118, end: 20080201
  45. MUCOSTA [Concomitant]
     Indication: GASTRIC DISORDER
     Route: 048
     Dates: start: 20080118, end: 20080214
  46. MUCOSTA [Concomitant]
     Indication: PROPHYLAXIS
     Route: 048
     Dates: start: 20080118, end: 20080214
  47. MYSLEE [Concomitant]
     Indication: INSOMNIA
     Route: 048
     Dates: start: 20080118, end: 20080214
  48. XYLOCAINE [Concomitant]
     Indication: PAIN
     Dates: start: 20061130, end: 20080122
  49. RINDERON                           /00008501/ [Concomitant]
     Indication: PAIN
     Dates: start: 20071221, end: 20080122
  50. NEO-MEDROL                         /00259601/ [Concomitant]
     Indication: ECZEMA
     Dosage: DOSE: AS NEEDED
     Route: 003
     Dates: start: 20080125, end: 20080131
  51. HIRUDOID                           /00723701/ [Concomitant]
     Indication: SEBORRHOEIC DERMATITIS
     Route: 003
     Dates: start: 20080125, end: 20080201
  52. PRAVASTATIN [Concomitant]
     Indication: HYPERLIPIDAEMIA
     Route: 048
     Dates: end: 20080214
  53. RADIOTHERAPY [Concomitant]
     Indication: BREAST CANCER
     Dates: start: 20070130

REACTIONS (4)
  - BLOOD ALBUMIN DECREASED [None]
  - GASTRIC ULCER HAEMORRHAGE [None]
  - HAEMOGLOBIN DECREASED [None]
  - PROTEIN TOTAL DECREASED [None]
